FAERS Safety Report 4342225-X (Version None)
Quarter: 2004Q1

REPORT INFORMATION
  Report Type: 
  Country: None (occurrence: None)
  Receive Date: 20040329
  Receipt Date: 20031120
  Transmission Date: 20041129
  Serious: No
  Sender: FDA-Public Use
  Company Number: USA031152324

PATIENT
  Age: 15 Year
  Sex: Male
  Weight: 52 kg

DRUGS (4)
  1. STRATTERA [Suspect]
     Dosage: 25 MG/DAY
     Dates: start: 20030501
  2. AMINO ACIDS NOS [Concomitant]
  3. FISH OIL [Concomitant]
  4. MULTI-VITAMIN [Concomitant]

REACTIONS (5)
  - CHEST PAIN [None]
  - DYSPEPSIA [None]
  - HYPERSOMNIA [None]
  - INSOMNIA [None]
  - PALPITATIONS [None]
